FAERS Safety Report 25236459 (Version 2)
Quarter: 2025Q2

REPORT INFORMATION
  Report Type: Spontaneous
  Country: AU (occurrence: AU)
  Receive Date: 20250424
  Receipt Date: 20250516
  Transmission Date: 20250716
  Serious: Yes (Other)
  Sender: TAKEDA
  Company Number: AU-TAKEDA-2025TUS038116

PATIENT
  Age: 15 Year
  Sex: Female

DRUGS (7)
  1. PRUCALOPRIDE [Suspect]
     Active Substance: PRUCALOPRIDE
     Indication: Constipation
  2. PRUCALOPRIDE [Suspect]
     Active Substance: PRUCALOPRIDE
     Indication: Enteric neuropathy
  3. HUMAN IMMUNOGLOBULIN G [Suspect]
     Active Substance: HUMAN IMMUNOGLOBULIN G
     Indication: Enteric neuropathy
  4. QUETIAPINE [Concomitant]
     Active Substance: QUETIAPINE
     Dosage: 25 MILLIGRAM, TID
  5. PALIPERIDONE [Concomitant]
     Active Substance: PALIPERIDONE
     Dosage: 6 MILLIGRAM, QD
  6. FLUVOXAMINE [Concomitant]
     Active Substance: FLUVOXAMINE
     Indication: Depression
     Dosage: 125 MILLIGRAM, QD
  7. QUETIAPINE FUMARATE [Concomitant]
     Active Substance: QUETIAPINE FUMARATE
     Dosage: 75 MILLIGRAM, QD

REACTIONS (3)
  - Hallucinations, mixed [Unknown]
  - Suicidal ideation [Unknown]
  - Drug ineffective [Unknown]
